FAERS Safety Report 20501647 (Version 2)
Quarter: 2022Q1

REPORT INFORMATION
  Report Type: Spontaneous
  Country: AU (occurrence: AU)
  Receive Date: 20220222
  Receipt Date: 20220302
  Transmission Date: 20220423
  Serious: Yes (Life-Threatening, Other)
  Sender: FDA-Public Use
  Company Number: AU-GE HEALTHCARE LIFE SCIENCES-2020CSU001620

PATIENT
  Age: 58 Year
  Sex: Female

DRUGS (4)
  1. GADOBUTROL [Suspect]
     Active Substance: GADOBUTROL
     Indication: Product used for unknown indication
  2. GADOBUTROL [Suspect]
     Active Substance: GADOBUTROL
     Indication: Product used for unknown indication
  3. CLARISCAN [Suspect]
     Active Substance: GADOTERATE MEGLUMINE
     Indication: Diagnostic procedure
     Dosage: UNK UNK, SINGLE
  4. CLARISCAN [Suspect]
     Active Substance: GADOTERATE MEGLUMINE
     Indication: Product used for unknown indication

REACTIONS (17)
  - Respiratory failure [Unknown]
  - Gadolinium deposition disease [Unknown]
  - Anaphylactic reaction [Unknown]
  - Acute kidney injury [Unknown]
  - Pancreatitis [Unknown]
  - Peripheral artery occlusion [Unknown]
  - Muscle spasms [Unknown]
  - Dry eye [Unknown]
  - Myalgia [Unknown]
  - Visual impairment [Unknown]
  - Anxiety [Unknown]
  - Hepatic steatosis [Unknown]
  - Fatigue [Unknown]
  - Amnesia [Unknown]
  - Arthralgia [Unknown]
  - Alopecia [Unknown]
  - Hypertrophy [Unknown]
